FAERS Safety Report 4960377-5 (Version None)
Quarter: 2006Q1

REPORT INFORMATION
  Report Type: 
  Country: None (occurrence: None)
  Receive Date: 20060329
  Receipt Date: 20060311
  Transmission Date: 20060701
  Serious: Yes (Other)
  Sender: FDA-Public Use
  Company Number: ENT 2006-0038

PATIENT
  Sex: Male

DRUGS (1)
  1. COMTAN [Suspect]
     Dosage: 1000 MG
     Route: 048

REACTIONS (1)
  - CONFUSIONAL STATE [None]
